FAERS Safety Report 18651018 (Version 1)
Quarter: 2020Q4

REPORT INFORMATION
  Report Type: Spontaneous
  Country: SE (occurrence: SE)
  Receive Date: 20201222
  Receipt Date: 20201222
  Transmission Date: 20210114
  Serious: Yes (Death)
  Sender: FDA-Public Use
  Company Number: SE-MYLANLABS-2020M1103706

PATIENT
  Age: 60 Year
  Sex: Male

DRUGS (15)
  1. OXYCONTIN [Concomitant]
     Active Substance: OXYCODONE HYDROCHLORIDE
     Dosage: VB
  2. ABASAGLAR [Concomitant]
     Active Substance: INSULIN GLARGINE
     Dosage: 20+20 E
  3. OZEMPIC [Concomitant]
     Active Substance: SEMAGLUTIDE
     Dosage: 1 MILLIGRAM, QW
  4. ATORVASTATIN [Suspect]
     Active Substance: ATORVASTATIN
     Indication: PRODUCT USED FOR UNKNOWN INDICATION
     Dosage: 20 MILLIGRAM, QD
     Dates: start: 20200423, end: 20200911
  5. PLAVIX [Concomitant]
     Active Substance: CLOPIDOGREL BISULFATE
     Dosage: 1 DOSAGE FORM, QD
  6. CANDESARTAN CILEXETIL. [Concomitant]
     Active Substance: CANDESARTAN CILEXETIL
     Dosage: 8 MILLIGRAM, QD
  7. FURIX [Concomitant]
     Dosage: 80 MILLIGRAM, QD
  8. NOVORAPID [Concomitant]
     Active Substance: INSULIN ASPART
     Dosage: 10+10 E
  9. BISOPROLOL [Concomitant]
     Active Substance: BISOPROLOL
     Dosage: 10 MILLIGRAM, QD
  10. TROMBYL [Concomitant]
     Active Substance: ASPIRIN
     Dosage: 75 MILLIGRAM, QD
  11. URSOFALK [Concomitant]
     Active Substance: URSODIOL
     Dosage: 3 DOSAGE FORM, QD
  12. ALVEDON [Concomitant]
     Active Substance: ACETAMINOPHEN
     Dosage: VB
  13. PENTASA [Concomitant]
     Active Substance: MESALAMINE
     Dosage: 2 GRAM, QD
  14. ZOLPIDEM [Concomitant]
     Active Substance: ZOLPIDEM TARTRATE
     Dosage: VB
  15. OMEPRAZOLE. [Concomitant]
     Active Substance: OMEPRAZOLE
     Dosage: 1 DOSAGE FORM, QD

REACTIONS (1)
  - Necrotising myositis [Fatal]

NARRATIVE: CASE EVENT DATE: 20200911
